FAERS Safety Report 7450191-3 (Version None)
Quarter: 2011Q2

REPORT INFORMATION
  Report Type: 
  Country: None (occurrence: None)
  Receive Date: 20110422
  Receipt Date: 20110412
  Transmission Date: 20111010
  Serious: Yes (Life-Threatening)
  Sender: FDA-Public Use
  Company Number: 1000020200

PATIENT
  Age: 32 Year
  Sex: Female
  Weight: 52.16 kg

DRUGS (1)
  1. CELEXA [Suspect]
     Dosage: 10 MG (10 MG,1 IN 1 D), ORAL; 20 MG (20 MG,1 IN 1 D),ORAL
     Route: 048

REACTIONS (3)
  - SUICIDAL IDEATION [None]
  - FEELING ABNORMAL [None]
  - PSYCHOTIC DISORDER [None]
